FAERS Safety Report 25600776 (Version 1)
Quarter: 2025Q3

REPORT INFORMATION
  Report Type: Spontaneous
  Country: CN (occurrence: CN)
  Receive Date: 20250724
  Receipt Date: 20250724
  Transmission Date: 20251020
  Serious: Yes (Other)
  Sender: COHERUS
  Company Number: CN-SHANGHAI JUNSHI BIOSCIENCES CO., LTD.-CN2025014948

PATIENT

DRUGS (6)
  1. TORIPALIMAB [Suspect]
     Active Substance: TORIPALIMAB
     Indication: Breast cancer
  2. TORIPALIMAB [Suspect]
     Active Substance: TORIPALIMAB
     Dates: start: 20250625, end: 20250625
  3. PACLITAXEL [Suspect]
     Active Substance: PACLITAXEL
     Indication: Breast cancer
  4. PACLITAXEL [Suspect]
     Active Substance: PACLITAXEL
     Dates: start: 20250625, end: 20250625
  5. CARBOPLATIN [Suspect]
     Active Substance: CARBOPLATIN
     Indication: Breast cancer
  6. CARBOPLATIN [Suspect]
     Active Substance: CARBOPLATIN
     Dates: start: 20250625, end: 20250625

REACTIONS (1)
  - Myelosuppression [Recovering/Resolving]

NARRATIVE: CASE EVENT DATE: 20250715
